FAERS Safety Report 5561034-7 (Version None)
Quarter: 2007Q4

REPORT INFORMATION
  Report Type: 
  Country: None (occurrence: None)
  Receive Date: 20071215
  Receipt Date: 20071128
  Transmission Date: 20080405
  Serious: No
  Sender: FDA-Public Use
  Company Number: US-ABBOTT-07P-163-0426984-00

PATIENT
  Sex: Female
  Weight: 77.18 kg

DRUGS (3)
  1. HUMIRA [Suspect]
     Indication: COLITIS ULCERATIVE
     Route: 058
     Dates: start: 20071128
  2. ENDACORT [Concomitant]
     Indication: COLITIS ULCERATIVE
     Route: 048
     Dates: start: 20070101
  3. AZATHIOPRINE [Concomitant]
     Indication: COLITIS ULCERATIVE
     Route: 048
     Dates: start: 20060101

REACTIONS (3)
  - FEELING HOT [None]
  - HEADACHE [None]
  - RASH [None]
